FAERS Safety Report 9815549 (Version 2)
Quarter: 2014Q1

REPORT INFORMATION
  Report Type: Spontaneous
  Country: PT (occurrence: PT)
  Receive Date: 20140114
  Receipt Date: 20140114
  Transmission Date: 20141002
  Serious: Yes (Other)
  Sender: FDA-Public Use
  Company Number: PT-ASTRAZENECA-2013SE93129

PATIENT
  Age: 25205 Day
  Sex: Female
  Weight: 86.8 kg

DRUGS (7)
  1. SEROQUEL SR [Suspect]
     Indication: PSYCHOMOTOR HYPERACTIVITY
     Route: 048
     Dates: start: 201301, end: 20131022
  2. PRITORPLUS [Concomitant]
     Indication: HYPERTENSION
     Dosage: 80MG + 12,5MG, ONE TABLET PER DAY
     Route: 048
  3. AMIZAL [Concomitant]
     Indication: COGNITIVE DISORDER
     Route: 048
  4. LORAZEPAM [Concomitant]
     Indication: INSOMNIA
     Route: 048
  5. PAROXETINA [Concomitant]
     Indication: DEPRESSION
     Route: 048
  6. VASTAREL LM [Concomitant]
     Indication: VERTIGO
     Route: 048
  7. DONEPEZILO [Concomitant]
     Indication: DEMENTIA ALZHEIMER^S TYPE
     Route: 048

REACTIONS (1)
  - Insulin resistant diabetes [Recovering/Resolving]
